FAERS Safety Report 20724851 (Version 1)
Quarter: 2022Q2

REPORT INFORMATION
  Report Type: Spontaneous
  Country: US (occurrence: None)
  Receive Date: 20220418
  Receipt Date: 20220418
  Transmission Date: 20220721
  Serious: Yes (Congenital Anomaly, Other)
  Sender: FDA-Public Use
  Company Number: None

PATIENT
  Age: 0 Year
  Sex: Male
  Weight: 4.2 kg

DRUGS (2)
  1. CLINDAMYCIN [Suspect]
     Active Substance: CLINDAMYCIN
  2. AZELAIC ACID [Suspect]
     Active Substance: AZELAIC ACID

REACTIONS (2)
  - Hypospadias [None]
  - Urethral repair [None]

NARRATIVE: CASE EVENT DATE: 20181208
